FAERS Safety Report 16006915 (Version 2)
Quarter: 2019Q2

REPORT INFORMATION
  Report Type: Spontaneous
  Country: US (occurrence: US)
  Receive Date: 20190226
  Receipt Date: 20190502
  Transmission Date: 20190711
  Serious: Yes (Other)
  Sender: FDA-Public Use
  Company Number: US-PFIZER INC-2019073116

PATIENT
  Age: 37 Year
  Sex: Female

DRUGS (1)
  1. ZITHROMAX [Suspect]
     Active Substance: AZITHROMYCIN DIHYDRATE
     Indication: ACUTE MYELOID LEUKAEMIA
     Dosage: 10 MG, UNK

REACTIONS (6)
  - Blindness [Unknown]
  - Product use in unapproved indication [Unknown]
  - Apparent death [Unknown]
  - Malaise [Unknown]
  - Stevens-Johnson syndrome [Unknown]
  - Off label use [Unknown]
